FAERS Safety Report 9769738 (Version 1)
Quarter: 2013Q4

REPORT INFORMATION
  Report Type: Spontaneous
  Country: GR (occurrence: GR)
  Receive Date: 20131218
  Receipt Date: 20131218
  Transmission Date: 20140711
  Serious: Yes (Hospitalization)
  Sender: FDA-Public Use
  Company Number: GR-NOVOPROD-395284

PATIENT
  Sex: Female
  Weight: 1.6 kg

DRUGS (3)
  1. LEVEMIR [Suspect]
     Indication: GESTATIONAL DIABETES
     Dosage: UNK
     Route: 064
     Dates: end: 20130914
  2. LEVEMIR [Suspect]
     Indication: GESTATIONAL DIABETES
     Dosage: UNK
     Route: 064
     Dates: end: 20130914
  3. NOVORAPID [Suspect]
     Indication: GESTATIONAL DIABETES
     Dosage: UNK
     Route: 064
     Dates: end: 20130914

REACTIONS (2)
  - Premature baby [Unknown]
  - Low birth weight baby [Unknown]
